FAERS Safety Report 6655405-5 (Version None)
Quarter: 2010Q1

REPORT INFORMATION
  Report Type: 
  Country: None (occurrence: None)
  Receive Date: 20100326
  Receipt Date: 20100326
  Transmission Date: 20100710
  Serious: No
  Sender: FDA-Public Use
  Company Number: None

PATIENT

DRUGS (3)
  1. TYLENOL (CAPLET) [Suspect]
     Indication: SLEEP DISORDER
     Dosage: 1 - 25 MG TABLET NIGHTLY
     Dates: start: 20100124, end: 20100124
  2. BENADRYL [Concomitant]
  3. STEROIDS [Concomitant]

REACTIONS (5)
  - ABDOMINAL PAIN UPPER [None]
  - DIARRHOEA [None]
  - DRUG HYPERSENSITIVITY [None]
  - PHARYNGEAL OEDEMA [None]
  - URTICARIA [None]
